FAERS Safety Report 20673756 (Version 7)
Quarter: 2022Q4

REPORT INFORMATION
  Report Type: Report from Study
  Country: US (occurrence: US)
  Receive Date: 20220405
  Receipt Date: 20221126
  Transmission Date: 20230113
  Serious: Yes (Hospitalization)
  Sender: FDA-Public Use
  Company Number: US-ABBVIE-22K-163-4343257-00

PATIENT
  Sex: Male

DRUGS (1)
  1. HUMIRA [Suspect]
     Active Substance: ADALIMUMAB
     Indication: Colitis ulcerative
     Dosage: CF FORM STRENGTH- 40 MG
     Route: 058

REACTIONS (6)
  - Renal disorder [Unknown]
  - COVID-19 [Not Recovered/Not Resolved]
  - Illness [Unknown]
  - Malaise [Unknown]
  - Nausea [Unknown]
  - Fatigue [Unknown]
